FAERS Safety Report 23570853 (Version 1)
Quarter: 2024Q1

REPORT INFORMATION
  Report Type: Spontaneous
  Country: BR (occurrence: BR)
  Receive Date: 20240227
  Receipt Date: 20240227
  Transmission Date: 20240409
  Serious: Yes (Other)
  Sender: FDA-Public Use
  Company Number: BR-SA-SAC20240226000370

PATIENT
  Age: 60 Year
  Sex: Female
  Weight: 90 kg

DRUGS (1)
  1. RIFAMPIN [Suspect]
     Active Substance: RIFAMPIN
     Indication: Hidradenitis
     Dosage: BID, EVERY 12 HRS
     Route: 048

REACTIONS (2)
  - Drug dependence [Unknown]
  - Product use in unapproved indication [Unknown]
